FAERS Safety Report 7135304-5 (Version None)
Quarter: 2010Q4

REPORT INFORMATION
  Report Type: 
  Country: None (occurrence: None)
  Receive Date: 20101203
  Receipt Date: 20101129
  Transmission Date: 20110411
  Serious: Yes (Hospitalization, Other)
  Sender: FDA-Public Use
  Company Number: B0681201A

PATIENT
  Sex: Female
  Weight: 66 kg

DRUGS (6)
  1. EPIVIR [Suspect]
     Indication: HIV INFECTION
     Route: 065
     Dates: start: 20060101
  2. ZIDOVUDINE [Suspect]
     Indication: HIV INFECTION
     Route: 065
     Dates: start: 20060101, end: 20101016
  3. ABACAVIR [Suspect]
     Indication: HIV INFECTION
     Route: 065
     Dates: start: 20101016, end: 20101020
  4. NEVIRAPINE [Suspect]
     Indication: HIV INFECTION
     Route: 065
     Dates: start: 20060101
  5. AMLODIPINE [Concomitant]
     Indication: HYPERTENSION
     Dosage: 10MG PER DAY
     Route: 048
     Dates: start: 20100909
  6. GLICLAZIDE [Concomitant]
     Indication: DIABETES MELLITUS
     Dosage: 80MG PER DAY
     Route: 048
     Dates: start: 20100909

REACTIONS (4)
  - BLOOD AMYLASE INCREASED [None]
  - BLOOD GLUCOSE INCREASED [None]
  - LIPOATROPHY [None]
  - PANCREATITIS [None]
